FAERS Safety Report 4792099-8 (Version None)
Quarter: 2005Q4

REPORT INFORMATION
  Report Type: 
  Country: None (occurrence: None)
  Receive Date: 20051007
  Receipt Date: 20050913
  Transmission Date: 20060501
  Serious: Yes (Hospitalization)
  Sender: FDA-Public Use
  Company Number: JP-MERCK-0509USA02838

PATIENT
  Age: 74 Year
  Sex: Female

DRUGS (4)
  1. PEPCID [Suspect]
     Indication: GASTRIC ULCER
     Route: 048
     Dates: start: 20050506, end: 20050904
  2. URSODIOL [Concomitant]
     Indication: HEPATIC CIRRHOSIS
     Route: 048
     Dates: start: 20050215, end: 20050904
  3. PROHEPARUM [Concomitant]
     Indication: HEPATIC CIRRHOSIS
     Route: 048
     Dates: start: 20050215, end: 20050904
  4. FERROMIA [Concomitant]
     Indication: ANAEMIA
     Route: 048
     Dates: start: 20050316, end: 20050904

REACTIONS (2)
  - DEMENTIA [None]
  - DRUG ERUPTION [None]
